FAERS Safety Report 24707480 (Version 1)
Quarter: 2024Q4

REPORT INFORMATION
  Report Type: Spontaneous
  Country: GB (occurrence: GB)
  Receive Date: 20241206
  Receipt Date: 20241206
  Transmission Date: 20250114
  Serious: Yes (Other)
  Sender: ELI LILLY AND COMPANY
  Company Number: None

PATIENT
  Age: 44 Year
  Sex: Female
  Weight: 91 kg

DRUGS (1)
  1. MOUNJARO [Suspect]
     Active Substance: TIRZEPATIDE
     Indication: Product used for unknown indication
     Dosage: UNK UNK, UNKNOWN
     Route: 065

REACTIONS (8)
  - Heart rate abnormal [Not Recovered/Not Resolved]
  - Electrocardiogram abnormal [Unknown]
  - Dyspnoea [Unknown]
  - Chest discomfort [Unknown]
  - Hot flush [Unknown]
  - Diarrhoea [Unknown]
  - Vomiting [Unknown]
  - Eructation [Unknown]

NARRATIVE: CASE EVENT DATE: 20241126
